FAERS Safety Report 11590980 (Version 2)
Quarter: 2015Q4

REPORT INFORMATION
  Report Type: Other
  Country: IT (occurrence: IT)
  Receive Date: 20151003
  Receipt Date: 20151005
  Transmission Date: 20160304
  Serious: Yes (Hospitalization)
  Sender: FDA-Public Use
  Company Number: IT-SUN PHARMACEUTICAL INDUSTRIES LTD-2013SUN00469

PATIENT

DRUGS (3)
  1. LORAZEPAM. [Suspect]
     Active Substance: LORAZEPAM
     Indication: INTENTIONAL SELF-INJURY
     Dosage: 1 DF, UNK
     Route: 048
     Dates: start: 20130206, end: 20130206
  2. DEPAKENE [Suspect]
     Active Substance: VALPROIC ACID
     Indication: INTENTIONAL SELF-INJURY
     Dosage: 1 UNIT, UNK
     Route: 048
     Dates: start: 20130206, end: 20130206
  3. OLANZAPINE 5 MG TABLETS [Suspect]
     Active Substance: OLANZAPINE
     Indication: INTENTIONAL SELF-INJURY
     Dosage: 1 DF, UNK
     Route: 048
     Dates: start: 20130206, end: 20130206

REACTIONS (6)
  - Somnolence [Recovered/Resolved]
  - Electrocardiogram repolarisation abnormality [Recovered/Resolved]
  - Myocardial necrosis marker increased [Recovered/Resolved]
  - Intentional self-injury [Recovered/Resolved]
  - Intentional overdose [Unknown]
  - Toxicity to various agents [Recovered/Resolved]

NARRATIVE: CASE EVENT DATE: 20130206
